FAERS Safety Report 19926848 (Version 1)
Quarter: 2021Q4

REPORT INFORMATION
  Report Type: Spontaneous
  Country: FI (occurrence: FI)
  Receive Date: 20211007
  Receipt Date: 20211007
  Transmission Date: 20220303
  Serious: Yes (Disabling)
  Sender: FDA-Public Use
  Company Number: None

PATIENT
  Age: 41 Year
  Sex: Male

DRUGS (2)
  1. ARIPIPRAZOLE [Suspect]
     Active Substance: ARIPIPRAZOLE
     Indication: Anxiety
     Dosage: 5 MILLIGRAM DAILY;
     Route: 048
  2. ABILIFY [Suspect]
     Active Substance: ARIPIPRAZOLE
     Indication: Anxiety
     Dosage: 5 MILLIGRAM DAILY;
     Route: 048

REACTIONS (10)
  - Loss of libido [Recovered/Resolved with Sequelae]
  - Hepatic steatosis [Recovered/Resolved with Sequelae]
  - Alopecia [Recovered/Resolved with Sequelae]
  - Feeling abnormal [Recovered/Resolved with Sequelae]
  - Weight increased [Recovered/Resolved with Sequelae]
  - Intraocular pressure increased [Recovered/Resolved with Sequelae]
  - Erectile dysfunction [Recovered/Resolved with Sequelae]
  - Metabolic syndrome [Recovered/Resolved with Sequelae]
  - Sexual dysfunction [Recovered/Resolved with Sequelae]
  - Disturbance in attention [Recovered/Resolved with Sequelae]

NARRATIVE: CASE EVENT DATE: 20170609
